FAERS Safety Report 14476039 (Version 1)
Quarter: 2018Q1

REPORT INFORMATION
  Report Type: Spontaneous
  Country: US (occurrence: US)
  Receive Date: 20180201
  Receipt Date: 20180201
  Transmission Date: 20180509
  Serious: Yes (Hospitalization)
  Sender: FDA-Public Use
  Company Number: US-LANNETT COMPANY, INC.-US-2018LAN000049

PATIENT
  Age: 40 Year
  Sex: Female
  Weight: 101 kg

DRUGS (10)
  1. MIDAZOLAM [Suspect]
     Active Substance: MIDAZOLAM HYDROCHLORIDE
     Indication: ANXIETY
     Dosage: UNK
     Route: 065
  2. ROCURONIUM [Suspect]
     Active Substance: ROCURONIUM BROMIDE
     Indication: MAINTENANCE OF ANAESTHESIA
     Dosage: UNK
     Route: 065
  3. ONDANSETRON [Suspect]
     Active Substance: ONDANSETRON
     Indication: PRODUCT USED FOR UNKNOWN INDICATION
     Dosage: UNK
     Route: 065
  4. SEVOFLURANE. [Suspect]
     Active Substance: SEVOFLURANE
     Indication: MAINTENANCE OF ANAESTHESIA
     Dosage: UNK
     Route: 065
  5. HYDROMORPHONE HYDROCHLORIDE (8MG) [Suspect]
     Active Substance: HYDROMORPHONE HYDROCHLORIDE
     Indication: MAINTENANCE OF ANAESTHESIA
     Dosage: UNK (4 HOURS)
     Route: 065
  6. ACETAMINOPHEN. [Suspect]
     Active Substance: ACETAMINOPHEN
     Indication: PRODUCT USED FOR UNKNOWN INDICATION
     Dosage: UNK
     Route: 065
  7. PROPOFOL. [Suspect]
     Active Substance: PROPOFOL
     Indication: GENERAL ANAESTHESIA
     Dosage: UNK
     Route: 065
  8. HYDROMORPHONE HYDROCHLORIDE (8MG) [Suspect]
     Active Substance: HYDROMORPHONE HYDROCHLORIDE
     Indication: GENERAL ANAESTHESIA
     Dosage: UNK
     Route: 065
  9. LIDOCAINE. [Suspect]
     Active Substance: LIDOCAINE
     Indication: GENERAL ANAESTHESIA
     Dosage: UNK
     Route: 065
  10. SUCCINYLCHOLINE                    /00057701/ [Suspect]
     Active Substance: SUCCINYLCHOLINE
     Indication: GENERAL ANAESTHESIA
     Dosage: UNK
     Route: 065

REACTIONS (1)
  - Anaesthetic complication neurological [Recovered/Resolved]
